FAERS Safety Report 15960360 (Version 1)
Quarter: 2019Q1

REPORT INFORMATION
  Report Type: Spontaneous
  Country: US (occurrence: US)
  Receive Date: 20190214
  Receipt Date: 20190214
  Transmission Date: 20190417
  Serious: No
  Sender: FDA-Public Use
  Company Number: US-ROCHE-2093508

PATIENT
  Age: 66 Year
  Sex: Male

DRUGS (1)
  1. ERIVEDGE [Suspect]
     Active Substance: VISMODEGIB
     Indication: ILL-DEFINED DISORDER
     Dosage: ONGOING: NO
     Route: 065
     Dates: start: 201707, end: 201801

REACTIONS (3)
  - Muscle spasms [Not Recovered/Not Resolved]
  - Drug hypersensitivity [Unknown]
  - Myalgia [Not Recovered/Not Resolved]
